FAERS Safety Report 9771913 (Version 1)
Quarter: 2013Q4

REPORT INFORMATION
  Report Type: Spontaneous
  Country: US (occurrence: None)
  Receive Date: 20131001
  Receipt Date: 20131001
  Transmission Date: 20140711
  Serious: Yes (Death)
  Sender: FDA-Public Use
  Company Number: ACO_31157_2012

PATIENT
  Age: 54 Year
  Sex: Female

DRUGS (1)
  1. AMPYRA (DALFAMPRIDINE) TABLET, 10MG [Suspect]
     Indication: MULTIPLE SCLEROSIS
     Route: 048
     Dates: start: 20120116

REACTIONS (6)
  - Cardiac arrest [None]
  - Sepsis [None]
  - Malaise [None]
  - Hypertension [None]
  - Unevaluable event [None]
  - Urinary tract infection [None]
